FAERS Safety Report 4965030-X (Version None)
Quarter: 2006Q2

REPORT INFORMATION
  Report Type: 
  Country: None (occurrence: None)
  Receive Date: 20060403
  Receipt Date: 20060322
  Transmission Date: 20061013
  Serious: Yes (Other)
  Sender: FDA-Public Use
  Company Number: 2003013202

PATIENT
  Age: 64 Year
  Sex: Female

DRUGS (12)
  1. ATORVASTATIN CALCIUM [Suspect]
     Indication: DYSLIPIDAEMIA
     Dosage: 10 MG (1 IN 1 D); ORAL
     Route: 048
     Dates: start: 19981201, end: 20060101
  2. ENALAPRIL MALEATE [Concomitant]
  3. ATENOLOL [Concomitant]
  4. GINKGO BILOBA EXTRACT [Concomitant]
  5. ALL OTHER THERAPEUTIC PRODUCTS [Concomitant]
  6. PROPATYLNITRATE [Concomitant]
  7. GLIBENCLAMIDE/METFORMIN [Concomitant]
  8. METFORMIN [Concomitant]
  9. ACETYLSALICYLIC ACID SRT [Concomitant]
  10. ADALAT ORDOS (NIFEDIPINE) [Concomitant]
  11. LOSARTAN POTASSIUM [Concomitant]
  12. CALCIUM GLUCONATE [Concomitant]

REACTIONS (3)
  - ARTERIAL OCCLUSIVE DISEASE [None]
  - BLOOD CHOLESTEROL INCREASED [None]
  - BLOOD TRIGLYCERIDES INCREASED [None]
